FAERS Safety Report 10242974 (Version 1)
Quarter: 2014Q2

REPORT INFORMATION
  Report Type: Spontaneous
  Country: US (occurrence: US)
  Receive Date: 20140618
  Receipt Date: 20140618
  Transmission Date: 20141212
  Serious: Yes (Other)
  Sender: FDA-Public Use
  Company Number: US-AMGEN-USASP2014045056

PATIENT
  Age: 9 Year
  Sex: Female

DRUGS (5)
  1. ENBREL [Suspect]
     Indication: PRODUCT USED FOR UNKNOWN INDICATION
     Dosage: 25 MG, QWK
     Route: 058
     Dates: start: 201106, end: 20140610
  2. PREDNISONE [Concomitant]
     Dosage: 1 MG, UNK
  3. FOLIC ACID [Concomitant]
     Dosage: 1 MG, UNK
  4. MIRALAX                            /06344701/ [Concomitant]
     Dosage: UNK
  5. METHOTREXATE [Concomitant]
     Dosage: 1 G, UNK

REACTIONS (2)
  - Juvenile idiopathic arthritis [Unknown]
  - Drug effect decreased [Unknown]
